FAERS Safety Report 6435555-9 (Version None)
Quarter: 2009Q4

REPORT INFORMATION
  Report Type: 
  Country: None (occurrence: None)
  Receive Date: 20091111
  Receipt Date: 20091104
  Transmission Date: 20100525
  Serious: Yes (Disabling)
  Sender: FDA-Public Use
  Company Number: DK-BRACCO-000030

PATIENT
  Sex: Female
  Weight: 100 kg

DRUGS (1)
  1. CONTRAST MEDIA [Suspect]
     Indication: NUCLEAR MAGNETIC RESONANCE IMAGING
     Route: 042
     Dates: start: 20031128, end: 20031128

REACTIONS (1)
  - NEPHROGENIC SYSTEMIC FIBROSIS [None]
